FAERS Safety Report 7772659-2 (Version None)
Quarter: 2011Q3

REPORT INFORMATION
  Report Type: 
  Country: None (occurrence: None)
  Receive Date: 20110922
  Receipt Date: 20101207
  Transmission Date: 20111222
  Serious: No
  Sender: FDA-Public Use
  Company Number: US-ASTRAZENECA-2010SE58064

PATIENT
  Age: 53 Year
  Sex: Female
  Weight: 54.4 kg

DRUGS (1)
  1. SEROQUEL XR [Suspect]
     Indication: MAJOR DEPRESSION
     Route: 048

REACTIONS (6)
  - BACK INJURY [None]
  - NECK INJURY [None]
  - HYPOAESTHESIA [None]
  - INTERVERTEBRAL DISC PROTRUSION [None]
  - DEPRESSION [None]
  - INFLUENZA [None]
